FAERS Safety Report 9579597 (Version 2)
Quarter: 2013Q4

REPORT INFORMATION
  Report Type: Spontaneous
  Country: US (occurrence: US)
  Receive Date: 20131001
  Receipt Date: 20131001
  Transmission Date: 20140711
  Serious: No
  Sender: FDA-Public Use
  Company Number: US-AMGEN-USASP2013016998

PATIENT
  Age: 46 Year
  Sex: Male

DRUGS (7)
  1. ENBREL [Suspect]
     Indication: PSORIASIS
     Dosage: 50 MG, 2 TIMES/WK
     Route: 058
     Dates: start: 201302
  2. VYTORIN [Concomitant]
     Dosage: UNK
  3. POTASSIUM [Concomitant]
     Dosage: UNK
  4. SYNTHROID [Concomitant]
     Dosage: UNK
  5. WELLBUTRIN [Concomitant]
     Dosage: UNK
  6. DEXILANT [Concomitant]
     Dosage: UNK
  7. TRIBENDAZOL [Concomitant]
     Dosage: UNK

REACTIONS (6)
  - Overdose [Recovered/Resolved]
  - Headache [Not Recovered/Not Resolved]
  - Productive cough [Not Recovered/Not Resolved]
  - Tremor [Recovered/Resolved]
  - Psoriasis [Not Recovered/Not Resolved]
  - Nasopharyngitis [Unknown]
